FAERS Safety Report 7016231-0 (Version None)
Quarter: 2010Q3

REPORT INFORMATION
  Report Type: 
  Country: None (occurrence: None)
  Receive Date: 20100927
  Receipt Date: 20091117
  Transmission Date: 20110219
  Serious: No
  Sender: FDA-Public Use
  Company Number: US-ASTRAZENECA-2009SE27055

PATIENT
  Age: 54 Year
  Sex: Female
  Weight: 44 kg

DRUGS (4)
  1. ARIMIDEX [Suspect]
     Indication: BREAST CANCER
     Route: 048
     Dates: start: 20090601
  2. ALENDRONATE SODIUM [Concomitant]
  3. VITAMIN D [Concomitant]
  4. CALCIUM SUPPLEMENT [Concomitant]

REACTIONS (3)
  - BONE PAIN [None]
  - DYSURIA [None]
  - METRORRHAGIA [None]
